FAERS Safety Report 20458779 (Version 1)
Quarter: 2022Q1

REPORT INFORMATION
  Report Type: Spontaneous
  Country: US (occurrence: US)
  Receive Date: 20220211
  Receipt Date: 20220211
  Transmission Date: 20220423
  Serious: Yes (Other)
  Sender: FDA-Public Use
  Company Number: US-CELLTRION INC.-2022US001324

PATIENT

DRUGS (3)
  1. TRUXIMA [Suspect]
     Active Substance: RITUXIMAB-ABBS
     Indication: Haemolytic anaemia
     Dosage: 790 MG D1, 8, 15, 22 Q6MONTHS
     Dates: start: 20220119
  2. TRUXIMA [Suspect]
     Active Substance: RITUXIMAB-ABBS
     Dosage: 790 MG D1, 8, 15, 22 Q6MONTHS
     Dates: start: 20220126
  3. TRUXIMA [Suspect]
     Active Substance: RITUXIMAB-ABBS
     Dosage: 790 MG D1, 8, 15, 22 Q6MONTHS
     Dates: start: 20220202

REACTIONS (2)
  - Haemolytic anaemia [Unknown]
  - Off label use [Unknown]

NARRATIVE: CASE EVENT DATE: 20220119
